FAERS Safety Report 24748611 (Version 1)
Quarter: 2024Q4

REPORT INFORMATION
  Report Type: Spontaneous
  Country: FR (occurrence: FR)
  Receive Date: 20241218
  Receipt Date: 20241218
  Transmission Date: 20250115
  Serious: Yes (Congenital Anomaly)
  Sender: VERTEX
  Company Number: None

PATIENT
  Sex: Female
  Weight: 4 kg

DRUGS (2)
  1. ELEXACAFTOR\IVACAFTOR\TEZACAFTOR [Suspect]
     Active Substance: ELEXACAFTOR\IVACAFTOR\TEZACAFTOR
     Indication: Cystic fibrosis
     Dosage: (75 MG IVACAFTOR/ 50 MG TEZACAFTOR/100 MG ELEXACAFTOR)IN THE EVENING
     Route: 048
     Dates: start: 2024, end: 20241019
  2. KALYDECO [Suspect]
     Active Substance: IVACAFTOR
     Indication: Cystic fibrosis
     Dosage: (150 MG IVACAFTOR)
     Route: 048
     Dates: start: 2024, end: 20241019

REACTIONS (4)
  - Ventricular septal defect [Not Recovered/Not Resolved]
  - Persistent left superior vena cava [Not Recovered/Not Resolved]
  - Lipoma [Not Recovered/Not Resolved]
  - Foetal macrosomia [Recovered/Resolved]

NARRATIVE: CASE EVENT DATE: 20240101
